FAERS Safety Report 16700773 (Version 1)
Quarter: 2019Q3

REPORT INFORMATION
  Report Type: Spontaneous
  Country: IN (occurrence: IN)
  Receive Date: 20190814
  Receipt Date: 20190814
  Transmission Date: 20191004
  Serious: Yes (Other)
  Sender: FDA-Public Use
  Company Number: IN-EMCURE PHARMACEUTICALS LTD-2018-EPL-0055

PATIENT
  Age: 18 Year
  Sex: Male

DRUGS (3)
  1. FLUOROURACIL. [Suspect]
     Active Substance: FLUOROURACIL
     Indication: RECTOSIGMOID CANCER METASTATIC
     Dosage: TAKEN EVERY 2 WEEKS
  2. FOLINIC ACID [Concomitant]
     Active Substance: LEUCOVORIN
  3. IRINOTECAN HYDROCHLORIDE. [Suspect]
     Active Substance: IRINOTECAN HYDROCHLORIDE
     Indication: RECTOSIGMOID CANCER METASTATIC
     Dosage: TAKEN EVERY 2 WEEKS

REACTIONS (1)
  - Posterior reversible encephalopathy syndrome [Recovered/Resolved]
